FAERS Safety Report 23227716 (Version 5)
Quarter: 2025Q2

REPORT INFORMATION
  Report Type: Spontaneous
  Country: ES (occurrence: ES)
  Receive Date: 20231125
  Receipt Date: 20250524
  Transmission Date: 20250716
  Serious: Yes (Other)
  Sender: CELLTRION
  Company Number: ES-CELLTRION INC.-2023ES022576

PATIENT

DRUGS (5)
  1. BEVACIZUMAB [Suspect]
     Active Substance: BEVACIZUMAB
     Indication: Neurofibromatosis
     Route: 065
  2. BEVACIZUMAB [Suspect]
     Active Substance: BEVACIZUMAB
     Route: 065
  3. BEVACIZUMAB [Suspect]
     Active Substance: BEVACIZUMAB
     Route: 065
  4. BRIGATINIB [Concomitant]
     Active Substance: BRIGATINIB
  5. PREDNISONE [Concomitant]
     Active Substance: PREDNISONE

REACTIONS (13)
  - Glomerulonephritis [Unknown]
  - Thrombotic microangiopathy [Unknown]
  - Nephropathy toxic [Recovering/Resolving]
  - Cryoglobulinaemia [Unknown]
  - Nephrotic syndrome [Unknown]
  - Renal-limited thrombotic microangiopathy [Unknown]
  - Drug ineffective [Unknown]
  - Neurofibromatosis [Unknown]
  - Quality of life decreased [Unknown]
  - Haematuria [Unknown]
  - Proteinuria [Unknown]
  - Hypertension [Unknown]
  - Off label use [Unknown]
